FAERS Safety Report 8489552-2 (Version None)
Quarter: 2012Q3

REPORT INFORMATION
  Report Type: 
  Country: None (occurrence: None)
  Receive Date: 20120705
  Receipt Date: 20120704
  Transmission Date: 20120928
  Serious: No
  Sender: FDA-Public Use
  Company Number: US-PFIZER INC-2011US-44832

PATIENT
  Sex: Female
  Weight: 58.05 kg

DRUGS (5)
  1. CALCIUM [Concomitant]
     Dosage: UNK
  2. TENORMIN [Concomitant]
     Dosage: UNK
     Dates: start: 19860101
  3. CALAN [Suspect]
     Indication: HYPERTENSION
     Dosage: 120 MG, 2X/DAY
     Route: 048
     Dates: start: 19920101
  4. PREMARIN [Concomitant]
     Dosage: UNK
  5. MULTI-VITAMINS [Concomitant]
     Dosage: UNK

REACTIONS (3)
  - BLOOD PRESSURE FLUCTUATION [None]
  - DYSPNOEA [None]
  - MEDICATION ERROR [None]
